FAERS Safety Report 5167263-9 (Version None)
Quarter: 2006Q4

REPORT INFORMATION
  Report Type: 
  Country: None (occurrence: None)
  Receive Date: 20061207
  Receipt Date: 20061114
  Transmission Date: 20070319
  Serious: Yes (Other)
  Sender: FDA-Public Use
  Company Number: BF-BOEHRINGER INGELHEIM GMBH, GERMANY-2006-DE-06037GD

PATIENT
  Sex: Male

DRUGS (1)
  1. NEVIRAPINE [Suspect]
     Indication: PROPHYLAXIS AGAINST HIV INFECTION
     Dosage: SINGLE DOSE

REACTIONS (1)
  - HIV INFECTION [None]
